FAERS Safety Report 15894574 (Version 3)
Quarter: 2019Q3

REPORT INFORMATION
  Report Type: Report from Study
  Country: US (occurrence: US)
  Receive Date: 20190131
  Receipt Date: 20190814
  Transmission Date: 20191004
  Serious: No
  Sender: FDA-Public Use
  Company Number: US-ROCHE-2256241

PATIENT
  Age: 55 Year
  Sex: Female
  Weight: 52.21 kg

DRUGS (4)
  1. OCREVUS [Suspect]
     Active Substance: OCRELIZUMAB
     Indication: RELAPSING MULTIPLE SCLEROSIS
  2. DIPHENHYDRAMINE. [Concomitant]
     Active Substance: DIPHENHYDRAMINE
     Indication: PREMEDICATION
     Dosage: 1 HOUR BEFORE TREATMENT ; FOR SLEEP
     Route: 048
     Dates: start: 201808
  3. AMPYRA [Concomitant]
     Active Substance: DALFAMPRIDINE
     Dosage: WALKING
     Route: 065
  4. OCREVUS [Suspect]
     Active Substance: OCRELIZUMAB
     Indication: PRIMARY PROGRESSIVE MULTIPLE SCLEROSIS
     Route: 042
     Dates: start: 201808

REACTIONS (9)
  - Feeling hot [Recovered/Resolved]
  - Mental impairment [Unknown]
  - Yawning [Recovered/Resolved]
  - Sinusitis [Not Recovered/Not Resolved]
  - Flushing [Recovered/Resolved]
  - Nausea [Recovered/Resolved]
  - Headache [Unknown]
  - Feeling abnormal [Recovered/Resolved]
  - Discomfort [Recovered/Resolved]

NARRATIVE: CASE EVENT DATE: 201808
